FAERS Safety Report 7427620-4 (Version None)
Quarter: 2011Q2

REPORT INFORMATION
  Report Type: 
  Country: None (occurrence: None)
  Receive Date: 20110421
  Receipt Date: 20110411
  Transmission Date: 20111010
  Serious: Yes (Hospitalization)
  Sender: FDA-Public Use
  Company Number: CH-BRISTOL-MYERS SQUIBB COMPANY-15507361

PATIENT
  Age: 66 Year
  Sex: Male
  Weight: 64 kg

DRUGS (17)
  1. NEXIUM [Concomitant]
     Dosage: ENTERAL
  2. PERENTEROL [Concomitant]
     Dosage: ENTERAL
  3. TAXOTERE [Concomitant]
     Indication: HYPOPHARYNGEAL CANCER
  4. FRAGMIN [Concomitant]
     Route: 058
  5. NOVASOURCE [Concomitant]
     Dosage: 1 DF = 500ML,120ML/H 1500ML OVER 12H,NOVASOURCE GI FORTE,ENTERAL
  6. CONCOR [Concomitant]
     Dosage: ENTERAL
  7. ELTROXIN [Concomitant]
  8. REMERON [Concomitant]
     Dosage: ENTERAL
  9. ZESTRIL [Concomitant]
     Dosage: 0.5/DAY,ENTERAL
  10. ERBITUX [Suspect]
     Indication: HYPOPHARYNGEAL CANCER
     Route: 042
     Dates: start: 20101103
  11. ERBITUX [Suspect]
     Indication: LARYNGEAL CANCER
     Route: 042
     Dates: start: 20101103
  12. DIPIPERON [Concomitant]
     Dosage: PEG
  13. CISPLATIN [Concomitant]
     Indication: HYPOPHARYNGEAL CANCER
  14. CISPLATIN [Concomitant]
     Indication: LARYNGEAL CANCER
  15. TAXOTERE [Concomitant]
     Indication: LARYNGEAL CANCER
  16. CORDARONE [Concomitant]
     Dosage: ENTERAL
  17. ALDACTONE [Concomitant]
     Route: 042
     Dates: start: 20110120

REACTIONS (6)
  - PNEUMONIA ASPIRATION [None]
  - DYSPHAGIA [None]
  - PAIN [None]
  - GENERAL PHYSICAL HEALTH DETERIORATION [None]
  - MUCOSAL INFLAMMATION [None]
  - STEVENS-JOHNSON SYNDROME [None]
